FAERS Safety Report 25786912 (Version 1)
Quarter: 2025Q3

REPORT INFORMATION
  Report Type: Spontaneous
  Country: US (occurrence: US)
  Receive Date: 20250910
  Receipt Date: 20250910
  Transmission Date: 20251020
  Serious: No
  Sender: ANI
  Company Number: US-ANIPHARMA-2025-US-011138

PATIENT
  Age: 39 Year
  Sex: Female

DRUGS (13)
  1. CORTICOTROPIN [Suspect]
     Active Substance: CORTICOTROPIN
     Indication: Ankylosing spondylitis
     Route: 058
  2. EUCRISA [Concomitant]
     Active Substance: CRISABOROLE
  3. ALBUTEROL [Concomitant]
     Active Substance: ALBUTEROL
  4. DIAZEPAM [Concomitant]
     Active Substance: DIAZEPAM
  5. HYDROCORTISONE ACETATE [Concomitant]
     Active Substance: HYDROCORTISONE ACETATE
  6. DUEXIS [Concomitant]
     Active Substance: FAMOTIDINE\IBUPROFEN
  7. VYVANSE [Concomitant]
     Active Substance: LISDEXAMFETAMINE DIMESYLATE
  8. AMITIZA [Concomitant]
     Active Substance: LUBIPROSTONE
  9. OXYCODONE HYDROCHLORIDE [Concomitant]
     Active Substance: OXYCODONE HYDROCHLORIDE
  10. ONDANSETRON HYDROCHLORIDE [Concomitant]
     Active Substance: ONDANSETRON HYDROCHLORIDE
  11. TIZANIDINE HYDROCHLORIDE [Concomitant]
     Active Substance: TIZANIDINE HYDROCHLORIDE
  12. DAYVIGO [Concomitant]
     Active Substance: LEMBOREXANT
  13. IMITREX [Concomitant]
     Active Substance: SUMATRIPTAN SUCCINATE

REACTIONS (1)
  - Injection site irritation [Unknown]
